FAERS Safety Report 12247839 (Version 1)
Quarter: 2016Q2

REPORT INFORMATION
  Report Type: Spontaneous
  Country: US (occurrence: US)
  Receive Date: 20160408
  Receipt Date: 20160408
  Transmission Date: 20160815
  Serious: Yes (Other)
  Sender: FDA-Public Use
  Company Number: US-BAXTER-2016BAX017756

PATIENT
  Age: 62 Year
  Sex: Female
  Weight: 76.66 kg

DRUGS (9)
  1. ARIMIDEX [Suspect]
     Active Substance: ANASTROZOLE
     Indication: PRODUCT USED FOR UNKNOWN INDICATION
     Route: 065
  2. TOPROL XL [Concomitant]
     Active Substance: METOPROLOL SUCCINATE
     Indication: WOLFF-PARKINSON-WHITE SYNDROME
     Dosage: STARTED TAKING BEFORE 2007
     Route: 065
  3. AFINITOR [Suspect]
     Active Substance: EVEROLIMUS
     Indication: HORMONE SUPPRESSION THERAPY
     Route: 065
     Dates: start: 201601, end: 201601
  4. CAPECITABINE. [Suspect]
     Active Substance: CAPECITABINE
     Indication: PRODUCT USED FOR UNKNOWN INDICATION
     Dosage: 3 TABLETS BY MOUTH
     Route: 065
     Dates: start: 20160316
  5. XGEVA [Suspect]
     Active Substance: DENOSUMAB
     Indication: NEOPLASM MALIGNANT
     Route: 065
     Dates: start: 2012, end: 201411
  6. AROMASIN [Suspect]
     Active Substance: EXEMESTANE
     Indication: HORMONE SUPPRESSION THERAPY
     Route: 065
     Dates: start: 201601, end: 201601
  7. NEULASTA [Suspect]
     Active Substance: PEGFILGRASTIM
     Indication: PRODUCT USED FOR UNKNOWN INDICATION
     Route: 065
  8. CYCLOPHOSPHAMIDE FOR INJECTION, USP [Suspect]
     Active Substance: CYCLOPHOSPHAMIDE
     Indication: PRODUCT USED FOR UNKNOWN INDICATION
     Route: 042
     Dates: start: 20070705, end: 200710
  9. TAXOL [Suspect]
     Active Substance: PACLITAXEL
     Indication: PRODUCT USED FOR UNKNOWN INDICATION
     Route: 042
     Dates: start: 2007

REACTIONS (17)
  - Cerebrovascular accident [Recovered/Resolved]
  - Metastatic neoplasm [Unknown]
  - Bone neoplasm [Unknown]
  - Fatigue [Unknown]
  - Neuropathy peripheral [Unknown]
  - Vomiting [Recovered/Resolved]
  - Regurgitation [Unknown]
  - Nausea [Unknown]
  - Diarrhoea [Recovered/Resolved]
  - Hypophagia [Unknown]
  - Diarrhoea [Recovered/Resolved]
  - Osteonecrosis [Unknown]
  - Breast cancer metastatic [Unknown]
  - Osteoporosis [Not Recovered/Not Resolved]
  - Weight decreased [Unknown]
  - White blood cell count decreased [Unknown]
  - Headache [Unknown]

NARRATIVE: CASE EVENT DATE: 2007
